FAERS Safety Report 6604059-2 (Version None)
Quarter: 2010Q1

REPORT INFORMATION
  Report Type: 
  Country: None (occurrence: None)
  Receive Date: 20100226
  Receipt Date: 20090430
  Transmission Date: 20100710
  Serious: No
  Sender: FDA-Public Use
  Company Number: A0781547A

PATIENT
  Sex: Female

DRUGS (5)
  1. LAMICTAL CD [Suspect]
     Indication: BIPOLAR DISORDER
     Dosage: 25MG PER DAY
     Route: 048
  2. WELLBUTRIN XL [Concomitant]
  3. CLONAZEPAM [Concomitant]
  4. TRILEPTAL [Concomitant]
  5. UNSPECIFIED MEDICATIONS [Concomitant]

REACTIONS (1)
  - MYALGIA [None]
